FAERS Safety Report 12405000 (Version 3)
Quarter: 2016Q3

REPORT INFORMATION
  Report Type: Spontaneous
  Country: US (occurrence: US)
  Receive Date: 20160525
  Receipt Date: 20160803
  Transmission Date: 20161109
  Serious: No
  Sender: FDA-Public Use
  Company Number: US-LUNDBECK-DKLU2013851

PATIENT
  Sex: Female

DRUGS (2)
  1. NORTHERA [Suspect]
     Active Substance: DROXIDOPA
     Indication: PRODUCT USED FOR UNKNOWN INDICATION
     Route: 065
  2. NORTHERA [Suspect]
     Active Substance: DROXIDOPA
     Route: 065

REACTIONS (11)
  - Dyspnoea [Unknown]
  - Muscle spasms [Unknown]
  - Dizziness [Unknown]
  - Chest pain [Unknown]
  - Oedema peripheral [Unknown]
  - Somnolence [Unknown]
  - Migraine [Unknown]
  - Feeling abnormal [Unknown]
  - Arthralgia [Unknown]
  - Headache [Unknown]
  - Presyncope [Unknown]
